FAERS Safety Report 8933449 (Version 3)
Quarter: 2016Q1

REPORT INFORMATION
  Report Type: Report from Study
  Country: US (occurrence: US)
  Receive Date: 20121128
  Receipt Date: 20160108
  Transmission Date: 20160526
  Serious: Yes (Hospitalization)
  Sender: FDA-Public Use
  Company Number: US-ACTELION-A-NJ2012-75387

PATIENT
  Age: 76 Year
  Sex: Female

DRUGS (2)
  1. TRACLEER [Suspect]
     Active Substance: BOSENTAN
     Indication: PULMONARY ARTERIAL HYPERTENSION
     Dosage: 62.5 MG, BID
     Route: 048
     Dates: start: 2007
  2. COUMADIN [Concomitant]
     Active Substance: WARFARIN SODIUM

REACTIONS (9)
  - Eye irritation [Recovering/Resolving]
  - Asthenia [Recovered/Resolved]
  - Eye haemorrhage [Recovering/Resolving]
  - Transfusion [Unknown]
  - Haemorrhage [Unknown]
  - Anaemia [Recovered/Resolved]
  - Haemoglobin decreased [Recovered/Resolved]
  - Packed red blood cell transfusion [Unknown]
  - Eye pruritus [Recovering/Resolving]

NARRATIVE: CASE EVENT DATE: 201301
